FAERS Safety Report 9649442 (Version 3)
Quarter: 2014Q2

REPORT INFORMATION
  Report Type: Spontaneous
  Country: US (occurrence: None)
  Receive Date: 20131018
  Receipt Date: 20140421
  Transmission Date: 20141212
  Serious: No
  Sender: FDA-Public Use
  Company Number: AEGR000093

PATIENT
  Age: 29 Year
  Sex: Male
  Weight: 81.2 kg

DRUGS (13)
  1. JUXTAPID [Suspect]
     Indication: TYPE IIA HYPERLIPIDAEMIA
     Route: 048
     Dates: start: 201304
  2. CRESTOR (ROSUVASTATIN CALCIUM) [Concomitant]
  3. ZETIA (EZETIMIBE) [Concomitant]
  4. NIACIN (NIACIN) [Concomitant]
  5. ASPIRIN (ACETYLSALICYLIC ACID) [Concomitant]
  6. CARVEDILOL (CARVEDILOL) [Concomitant]
  7. LOSARTAN (LOSARTAN) [Concomitant]
  8. MULTIVITAMIN (ASCORBIC ACID, BIOTIN, CALCIUM, CHOLINE BITARTRATE, CHROMIUM, COPPER, FOLIC ACID, INOSITOL,  LODINE, IRON, MAGNESIUM, MANGANESE, MOLYBDENUM, NICOTINAMIDE, PANTOTHENIC ACID, PHOSPHORUS, POTASSIUM, PYRIDOXINE, RETINOL, RIBOFLAVIN, SELENIUM, T [Concomitant]
  9. PRILOSEC (OMEPRAZOLE MAGNESIUM) [Concomitant]
  10. IMODIUM (LOPERAMIDE HYDROCHLORIDE) [Concomitant]
  11. VITAMIN E (TOCOPHERYL ACETATE) [Concomitant]
  12. VITAMIN D (ERGOCALCIFEROL) [Concomitant]
  13. FISH OIL (FISH OIL) [Concomitant]

REACTIONS (4)
  - Abdominal discomfort [None]
  - Weight decreased [None]
  - Diarrhoea [None]
  - Gastrointestinal disorder [None]
